FAERS Safety Report 23037909 (Version 1)
Quarter: 2023Q4

REPORT INFORMATION
  Report Type: Spontaneous
  Country: CN (occurrence: CN)
  Receive Date: 20231006
  Receipt Date: 20231006
  Transmission Date: 20240110
  Serious: Yes (Hospitalization)
  Sender: FDA-Public Use
  Company Number: CN-002147023-NVSC2023CN211073

PATIENT
  Age: 32 Year
  Sex: Female
  Weight: 57 kg

DRUGS (1)
  1. CARBAMAZEPINE [Suspect]
     Active Substance: CARBAMAZEPINE
     Indication: Epilepsy
     Dosage: 600 MG, TID
     Route: 048
     Dates: start: 20230821, end: 20230829

REACTIONS (7)
  - Inappropriate antidiuretic hormone secretion [Recovering/Resolving]
  - Nausea [Unknown]
  - Dizziness [Unknown]
  - Vomiting [Unknown]
  - Neutrophil count decreased [Recovering/Resolving]
  - White blood cell count decreased [Unknown]
  - Drug level increased [Unknown]

NARRATIVE: CASE EVENT DATE: 20230823
